FAERS Safety Report 5803584-1 (Version None)
Quarter: 2008Q3

REPORT INFORMATION
  Report Type: 
  Country: None (occurrence: None)
  Receive Date: 20080708
  Receipt Date: 20080701
  Transmission Date: 20090109
  Serious: Yes (Other)
  Sender: FDA-Public Use
  Company Number: US-GENENTECH-263942

PATIENT
  Sex: Male

DRUGS (2)
  1. LUCENTIS [Suspect]
     Indication: MACULAR DEGENERATION
  2. ANTITHROMBOTIC THERAPY (UNK INGREDIENTS) [Suspect]

REACTIONS (1)
  - CEREBROVASCULAR ACCIDENT [None]
